FAERS Safety Report 23259494 (Version 1)
Quarter: 2023Q4

REPORT INFORMATION
  Report Type: Spontaneous
  Country: US (occurrence: US)
  Receive Date: 20231204
  Receipt Date: 20231204
  Transmission Date: 20240109
  Serious: Yes (Other)
  Sender: FDA-Public Use
  Company Number: US-OTSUKA-2023_031190

PATIENT
  Age: 82 Year
  Sex: Male

DRUGS (1)
  1. DACOGEN [Interacting]
     Active Substance: DECITABINE
     Indication: Product used for unknown indication
     Dosage: DECREASED FROM 5 DAY COURSE TO 3 DAY
     Route: 042

REACTIONS (2)
  - Immunosuppression [Unknown]
  - Thrombocytopenia [Unknown]
